FAERS Safety Report 15670655 (Version 1)
Quarter: 2018Q4

REPORT INFORMATION
  Report Type: Spontaneous
  Country: US (occurrence: US)
  Receive Date: 20181129
  Receipt Date: 20181129
  Transmission Date: 20190205
  Serious: Yes (Other)
  Sender: FDA-Public Use
  Company Number: US-AMGEN INC.-USASP2018169527

PATIENT
  Age: 26 Year
  Sex: Female

DRUGS (3)
  1. ZONISAMIDE. [Concomitant]
     Active Substance: ZONISAMIDE
     Indication: MIGRAINE PROPHYLAXIS
     Dosage: 125MG DAILY, DECREASED TO 100MG FOR 11 DAYS
     Route: 065
  2. AIMOVIG [Suspect]
     Active Substance: ERENUMAB-AOOE
     Indication: MIGRAINE
     Dosage: 70 MG, UNK
     Route: 065
     Dates: start: 201807
  3. LAMICTAL [Suspect]
     Active Substance: LAMOTRIGINE
     Indication: PRODUCT USED FOR UNKNOWN INDICATION
     Dosage: 25MG TWICE A DAY, UP TO 50MG TWICE A DAY
     Route: 065
     Dates: start: 20181005

REACTIONS (2)
  - Mood altered [Unknown]
  - Insomnia [Unknown]

NARRATIVE: CASE EVENT DATE: 201810
